FAERS Safety Report 8220876-X (Version None)
Quarter: 2012Q1

REPORT INFORMATION
  Report Type: 
  Country: None (occurrence: None)
  Receive Date: 20120320
  Receipt Date: 20120315
  Transmission Date: 20120608
  Serious: Yes (Other)
  Sender: FDA-Public Use
  Company Number: CA-B.I. PHARMACEUTICALS,INC./RIDGEFIELD-2012-CN-00602CN

PATIENT
  Age: 61 Year
  Sex: Male

DRUGS (2)
  1. ASPIRIN [Concomitant]
  2. PRADAXA [Suspect]

REACTIONS (2)
  - TRANSIENT ISCHAEMIC ATTACK [None]
  - ERECTILE DYSFUNCTION [None]
